FAERS Safety Report 6135236-5 (Version None)
Quarter: 2009Q1

REPORT INFORMATION
  Report Type: 
  Country: None (occurrence: None)
  Receive Date: 20090327
  Receipt Date: 20090316
  Transmission Date: 20090719
  Serious: Yes (Life-Threatening, Hospitalization)
  Sender: FDA-Public Use
  Company Number: NO-PFIZER INC-2009183348

PATIENT

DRUGS (2)
  1. LYRICA [Suspect]
     Indication: GENERALISED ANXIETY DISORDER
     Dosage: 300 MG, 2X/DAY
     Route: 048
     Dates: start: 20090106, end: 20090208
  2. METHADONE [Concomitant]
     Indication: DRUG DEPENDENCE
     Dosage: IN TITRATION, DOSES VARIED BETWEEN 50-80 MG/DAY
     Dates: start: 20090128

REACTIONS (1)
  - UNRESPONSIVE TO STIMULI [None]
